FAERS Safety Report 4406587-7 (Version None)
Quarter: 2004Q3

REPORT INFORMATION
  Report Type: 
  Country: None (occurrence: None)
  Receive Date: 20040723
  Receipt Date: 20040630
  Transmission Date: 20050211
  Serious: Yes (Life-Threatening, Other)
  Sender: FDA-Public Use
  Company Number: FR-GLAXOSMITHKLINE-B0337415A

PATIENT
  Age: 57 Year
  Sex: Male
  Weight: 59 kg

DRUGS (6)
  1. ZYBAN [Suspect]
     Indication: SMOKING CESSATION THERAPY
     Dosage: 150MG PER DAY
     Route: 048
     Dates: start: 20040627
  2. INSULIN HUMALOG MIX50 [Concomitant]
     Indication: DIABETES MELLITUS
     Dosage: 4IU PER DAY
     Route: 058
     Dates: start: 20040301
  3. HUMALOG [Concomitant]
     Indication: DIABETES MELLITUS
     Dosage: 2IU TWICE PER DAY
     Route: 058
     Dates: start: 20040301
  4. LANTUS [Concomitant]
     Indication: DIABETES MELLITUS
     Dosage: 6IU AT NIGHT
     Route: 058
     Dates: start: 20040301
  5. CREON 25000 [Concomitant]
     Route: 048
     Dates: start: 19950101
  6. INIPOMP [Concomitant]
     Dosage: 1G PER DAY
     Route: 048
     Dates: start: 20010101

REACTIONS (2)
  - DIABETES MELLITUS INADEQUATE CONTROL [None]
  - HYPOGLYCAEMIA [None]
